FAERS Safety Report 8799271 (Version 1)
Quarter: 2012Q4

REPORT INFORMATION
  Report Type: 
  Country: US (occurrence: US)
  Receive Date: 20120919
  Receipt Date: 20120919
  Transmission Date: 20130627
  Serious: No
  Sender: FDA-Public Use
  Company Number: US-ASTRAZENECA-2012SE65123

PATIENT
  Sex: Female

DRUGS (1)
  1. NEXIUM [Suspect]
     Route: 048
     Dates: start: 2011

REACTIONS (4)
  - Diabetes mellitus [Unknown]
  - Thyroid disorder [Unknown]
  - Gastric disorder [Unknown]
  - Sleep disorder due to a general medical condition [Unknown]
